FAERS Safety Report 25115753 (Version 1)
Quarter: 2025Q1

REPORT INFORMATION
  Report Type: Spontaneous
  Country: US (occurrence: US)
  Receive Date: 20250325
  Receipt Date: 20250325
  Transmission Date: 20250408
  Serious: No
  Sender: SANOFI AVENTIS
  Company Number: US-SA-2025SA083987

PATIENT
  Sex: Female

DRUGS (10)
  1. DUPIXENT [Suspect]
     Active Substance: DUPILUMAB
     Indication: Dermatitis atopic
     Dosage: 300 MG, QOW
     Route: 058
     Dates: start: 20211119
  2. BENZONATATE [Concomitant]
     Active Substance: BENZONATATE
  3. PREDNISONE [Concomitant]
     Active Substance: PREDNISONE
  4. NAPROXEN [Concomitant]
     Active Substance: NAPROXEN
  5. IBUPROFEN [Concomitant]
     Active Substance: IBUPROFEN
  6. FLUOCINONIDE [Concomitant]
     Active Substance: FLUOCINONIDE
  7. DESOXIMETASONE [Concomitant]
     Active Substance: DESOXIMETASONE
  8. A-HYDROCORT [Concomitant]
     Active Substance: HYDROCORTISONE SODIUM SUCCINATE
  9. ERYTHROMYCIN [Concomitant]
     Active Substance: ERYTHROMYCIN
  10. Betameth dipropionate [Concomitant]

REACTIONS (2)
  - Drug ineffective [Unknown]
  - Product dose omission in error [Unknown]
